FAERS Safety Report 23976813 (Version 2)
Quarter: 2024Q2

REPORT INFORMATION
  Report Type: Spontaneous
  Country: ES (occurrence: ES)
  Receive Date: 20240614
  Receipt Date: 20240628
  Transmission Date: 20240715
  Serious: Yes (Other)
  Sender: FDA-Public Use
  Company Number: ES-SA-2024SA175619

PATIENT
  Age: 69 Year
  Sex: Female

DRUGS (3)
  1. ELIGLUSTAT [Suspect]
     Active Substance: ELIGLUSTAT
     Indication: Gaucher^s disease type I
     Dosage: UNK
     Route: 065
     Dates: start: 1982
  2. ELIGLUSTAT [Suspect]
     Active Substance: ELIGLUSTAT
     Dosage: UNK
     Route: 065
     Dates: start: 2019
  3. IMIGLUCERASE [Suspect]
     Active Substance: IMIGLUCERASE
     Indication: Gaucher^s disease type I
     Dosage: UNK
     Dates: start: 200309, end: 2005

REACTIONS (23)
  - Dementia Alzheimer^s type [Unknown]
  - Amnesia [Unknown]
  - Peripheral sensory neuropathy [Recovered/Resolved]
  - Dementia with Lewy bodies [Unknown]
  - Mental impairment [Unknown]
  - Atrial fibrillation [Unknown]
  - Arrhythmia [Unknown]
  - Depression [Unknown]
  - Pseudodementia [Unknown]
  - Memory impairment [Unknown]
  - Aphasia [Unknown]
  - Apraxia [Unknown]
  - Visuospatial deficit [Unknown]
  - Cognitive disorder [Unknown]
  - Dependent personality disorder [Unknown]
  - Metabolic disorder [Unknown]
  - Perfusion brain scan abnormal [Unknown]
  - Disease progression [Unknown]
  - Impaired quality of life [Unknown]
  - Left atrial dilatation [Unknown]
  - Disorientation [Unknown]
  - Affect lability [Unknown]
  - Anosognosia [Unknown]

NARRATIVE: CASE EVENT DATE: 19980101
